FAERS Safety Report 15754599 (Version 3)
Quarter: 2019Q1

REPORT INFORMATION
  Report Type: Spontaneous
  Country: JP (occurrence: JP)
  Receive Date: 20181224
  Receipt Date: 20190130
  Transmission Date: 20190417
  Serious: Yes (Life-Threatening, Hospitalization, Other)
  Sender: FDA-Public Use
  Company Number: JP-TEVA-2018-JP-983955

PATIENT
  Age: 72 Year
  Sex: Female
  Weight: 36.8 kg

DRUGS (11)
  1. PARKISTON [Concomitant]
     Active Substance: CARBIDOPA\LEVODOPA
     Route: 065
  2. IRBESARTAN. [Concomitant]
     Active Substance: IRBESARTAN
     Route: 065
  3. NOURIAST [Concomitant]
     Active Substance: ISTRADEFYLLINE
     Route: 065
  4. AZILECT [Suspect]
     Active Substance: RASAGILINE MESYLATE
     Indication: PARKINSON^S DISEASE
     Dosage: 1 MILLIGRAM DAILY;
     Route: 048
     Dates: start: 20181020, end: 20181108
  5. TRERIEF [Concomitant]
     Active Substance: ZONISAMIDE
     Route: 065
  6. LANDSEN [Concomitant]
     Active Substance: CLONAZEPAM
     Route: 065
  7. YOKUKANSAN [Concomitant]
     Active Substance: HERBALS
     Route: 065
  8. LUNESTA [Concomitant]
     Active Substance: ESZOPICLONE
     Route: 065
  9. NEUPRO [Concomitant]
     Active Substance: ROTIGOTINE
     Route: 065
  10. AZILECT [Suspect]
     Active Substance: RASAGILINE MESYLATE
     Dosage: .5 MILLIGRAM DAILY;
     Route: 048
     Dates: start: 20181109, end: 20181121
  11. STALEVO [Concomitant]
     Active Substance: CARBIDOPA\ENTACAPONE\LEVODOPA
     Route: 065

REACTIONS (4)
  - Physical deconditioning [Recovered/Resolved]
  - Dopamine dysregulation syndrome [Recovering/Resolving]
  - Suicide attempt [Recovering/Resolving]
  - Dyskinesia [Recovered/Resolved]

NARRATIVE: CASE EVENT DATE: 20181022
